FAERS Safety Report 12943412 (Version 2)
Quarter: 2016Q4

REPORT INFORMATION
  Report Type: Spontaneous
  Country: JP (occurrence: JP)
  Receive Date: 20161115
  Receipt Date: 20161202
  Transmission Date: 20170207
  Serious: Yes (Life-Threatening)
  Sender: FDA-Public Use
  Company Number: JP-ELI_LILLY_AND_COMPANY-JP201611002660

PATIENT
  Age: 53 Year
  Sex: Female
  Weight: 41 kg

DRUGS (9)
  1. 5 FU [Concomitant]
     Active Substance: FLUOROURACIL
     Dosage: 3200 MG, OTHER
     Dates: start: 20161003, end: 20161031
  2. IRINOTECAN [Concomitant]
     Active Substance: IRINOTECAN
     Indication: COLON CANCER STAGE IV
     Dosage: 200 MG, OTHER
     Dates: start: 20161003, end: 20161031
  3. OXALIPLATIN. [Concomitant]
     Active Substance: OXALIPLATIN
     Indication: COLON CANCER STAGE IV
     Dosage: 170 MG, OTHER
     Dates: start: 20160222, end: 20160829
  4. CYRAMZA [Suspect]
     Active Substance: RAMUCIRUMAB
     Indication: COLON CANCER STAGE IV
     Dosage: 320 MG, OTHER
     Route: 042
     Dates: start: 20161017, end: 20161031
  5. AVASTIN [Suspect]
     Active Substance: BEVACIZUMAB
     Indication: COLON CANCER STAGE IV
     Dosage: 290 MG, OTHER
     Route: 065
     Dates: start: 20160222, end: 20160829
  6. TS-1 [Concomitant]
     Active Substance: GIMERACIL\OTERACIL\TEGAFUR
     Indication: COLON CANCER STAGE IV
     Dosage: 100 MG, OTHER
     Dates: start: 20160222, end: 20160829
  7. LEUCOVORIN                         /00566701/ [Concomitant]
     Active Substance: LEUCOVORIN
     Indication: COLON CANCER STAGE IV
     Dosage: UNK
  8. LEVOFOLINATE [Concomitant]
     Active Substance: LEVOLEUCOVORIN CALCIUM
     Indication: COLON CANCER STAGE IV
     Dosage: 125 MG, OTHER
     Dates: start: 20161003, end: 20161031
  9. 5 FU [Concomitant]
     Active Substance: FLUOROURACIL
     Indication: COLON CANCER STAGE IV
     Dosage: 540 MG, OTHER
     Dates: start: 20161003, end: 20161031

REACTIONS (1)
  - Gastrointestinal perforation [Recovering/Resolving]

NARRATIVE: CASE EVENT DATE: 20161102
